FAERS Safety Report 10327673 (Version 1)
Quarter: 2014Q3

REPORT INFORMATION
  Report Type: Spontaneous
  Country: US (occurrence: US)
  Receive Date: 20140721
  Receipt Date: 20140721
  Transmission Date: 20150326
  Serious: No
  Sender: FDA-Public Use
  Company Number: US-BIOGENIDEC-2014BI069003

PATIENT
  Age: 50 Year
  Sex: Female

DRUGS (3)
  1. BENADRYL [Concomitant]
     Active Substance: DIPHENHYDRAMINE HYDROCHLORIDE
     Indication: PREMEDICATION
     Dates: start: 20140702
  2. ASPIRIN. [Concomitant]
     Active Substance: ASPIRIN
     Indication: PREMEDICATION
     Dates: start: 20140702
  3. TECFIDERA [Suspect]
     Active Substance: DIMETHYL FUMARATE
     Indication: RELAPSING-REMITTING MULTIPLE SCLEROSIS
     Route: 048
     Dates: start: 20140702

REACTIONS (7)
  - Feeling abnormal [Unknown]
  - Feeling cold [Unknown]
  - Feeling hot [Unknown]
  - Nausea [Unknown]
  - Flushing [Unknown]
  - Burning sensation [Unknown]
  - Discomfort [Unknown]

NARRATIVE: CASE EVENT DATE: 20140702
